FAERS Safety Report 6870022-X (Version None)
Quarter: 2010Q3

REPORT INFORMATION
  Report Type: 
  Country: None (occurrence: None)
  Receive Date: 20100722
  Receipt Date: 20100711
  Transmission Date: 20110219
  Serious: Yes (Other)
  Sender: FDA-Public Use
  Company Number: US-PFIZER INC-2010086885

PATIENT
  Sex: Female
  Weight: 58 kg

DRUGS (4)
  1. NEURONTIN [Suspect]
     Indication: NERVE INJURY
     Dosage: 100 MG, 3X/DAY
     Route: 048
     Dates: start: 20100605, end: 20100601
  2. LYRICA [Suspect]
     Indication: NERVE INJURY
     Dosage: 75 MG, 2X/DAY
     Route: 048
     Dates: start: 20100611, end: 20100601
  3. VITAMIN C [Concomitant]
     Dosage: UNK
     Route: 048
  4. CALCIUM [Concomitant]
     Dosage: UNK
     Route: 048

REACTIONS (15)
  - ANGER [None]
  - ARTHRALGIA [None]
  - ASTHENIA [None]
  - BALANCE DISORDER [None]
  - DEPRESSION [None]
  - DRUG INEFFECTIVE [None]
  - EAR PAIN [None]
  - FEELING ABNORMAL [None]
  - HYPOAESTHESIA [None]
  - HYPOAESTHESIA FACIAL [None]
  - MYALGIA [None]
  - NAUSEA [None]
  - PAIN [None]
  - PHOTOSENSITIVITY REACTION [None]
  - TOOTHACHE [None]
